FAERS Safety Report 9461250 (Version 1)
Quarter: 2013Q3

REPORT INFORMATION
  Report Type: Spontaneous
  Country: US (occurrence: US)
  Receive Date: 20130816
  Receipt Date: 20130816
  Transmission Date: 20140515
  Serious: No
  Sender: FDA-Public Use
  Company Number: US-PFIZER INC-2013236458

PATIENT
  Age: 59 Year
  Sex: Male
  Weight: 74.83 kg

DRUGS (3)
  1. LYRICA [Suspect]
     Indication: NEURALGIA
     Dosage: 50 MG, 2X/DAY
     Route: 048
     Dates: start: 201306
  2. LYRICA [Interacting]
     Indication: NERVE INJURY
  3. ENALAPRIL [Interacting]
     Indication: HYPERTENSION
     Dosage: UNK

REACTIONS (4)
  - Off label use [Unknown]
  - Somnolence [Unknown]
  - Therapeutic response unexpected [Unknown]
  - Drug interaction [Unknown]
